FAERS Safety Report 6844508-8 (Version None)
Quarter: 2010Q3

REPORT INFORMATION
  Report Type: 
  Country: None (occurrence: None)
  Receive Date: 20100713
  Receipt Date: 20100629
  Transmission Date: 20110219
  Serious: Yes (Life-Threatening, Hospitalization)
  Sender: FDA-Public Use
  Company Number: AMAG201000268

PATIENT
  Age: 96 Year
  Sex: Female

DRUGS (14)
  1. FERAHEME [Suspect]
     Indication: IRON DEFICIENCY ANAEMIA
     Dosage: 510 MG, SINGLE, INTRAVENOUS; 510 MG, SINGLE, INTRAVENOUS
     Route: 042
     Dates: start: 20100609, end: 20100609
  2. FERAHEME [Suspect]
     Indication: IRON DEFICIENCY ANAEMIA
     Dosage: 510 MG, SINGLE, INTRAVENOUS; 510 MG, SINGLE, INTRAVENOUS
     Route: 042
     Dates: start: 20100616, end: 20100616
  3. ARTIFICIAL TEARS (HYPROMELLOSE) [Concomitant]
  4. BUMEX [Concomitant]
  5. CLINDAMYCIN (CLINDAMYCIN PHOSPHATE) [Concomitant]
  6. FELODIPINE [Concomitant]
  7. FLUTICASONE (FLUTICASONE PROPIONATE) [Concomitant]
  8. IMDUR [Concomitant]
  9. LAC-HYDRIN (AMMONIUM LACTATE) [Concomitant]
  10. LEVOXYL [Concomitant]
  11. LISINOPRIL (LISINOPRIL DIHYDRATE) [Concomitant]
  12. METOPROLOL TARTRATE [Concomitant]
  13. NEXIUM [Concomitant]
  14. WARFARIN SODIUM [Concomitant]

REACTIONS (11)
  - ACUTE MYOCARDIAL INFARCTION [None]
  - ANAPHYLACTIC REACTION [None]
  - ATRIAL FIBRILLATION [None]
  - BLOOD PRESSURE INCREASED [None]
  - CARDIAC ARREST [None]
  - EYE ROLLING [None]
  - MALAISE [None]
  - MUSCLE RIGIDITY [None]
  - PNEUMONIA [None]
  - RESPIRATORY ARREST [None]
  - URINARY TRACT INFECTION [None]
